FAERS Safety Report 4677511-7 (Version None)
Quarter: 2005Q2

REPORT INFORMATION
  Report Type: 
  Country: None (occurrence: None)
  Receive Date: 20050526
  Receipt Date: 20050526
  Transmission Date: 20051028
  Serious: Yes (Life-Threatening)
  Sender: FDA-Public Use
  Company Number: None

PATIENT
  Age: 46 Year
  Sex: Male
  Weight: 108.8633 kg

DRUGS (1)
  1. BEXTRA [Suspect]

REACTIONS (5)
  - ASTHENIA [None]
  - CARDIAC DISORDER [None]
  - FEAR [None]
  - FEELING ABNORMAL [None]
  - MUSCLE SPASMS [None]
